FAERS Safety Report 9063277 (Version 1)
Quarter: 2013Q1

REPORT INFORMATION
  Report Type: Spontaneous
  Country: GB (occurrence: GB)
  Receive Date: 20130201
  Receipt Date: 20130201
  Transmission Date: 20140127
  Serious: Yes (Hospitalization, Other)
  Sender: FDA-Public Use
  Company Number: GB-009507513-1301GBR012929

PATIENT
  Age: 50 Year
  Sex: Male

DRUGS (3)
  1. RIBAVIRIN [Suspect]
     Indication: HEPATITIS C
     Dosage: 2 IN 1 DAY
     Route: 048
     Dates: start: 20120927
  2. INTERFERON ALFA-2B [Suspect]
     Indication: HEPATITIS C
     Dosage: 1 IN 1 WEEK
     Route: 058
     Dates: start: 20120927
  3. TELAPREVIR [Suspect]
     Indication: HEPATITIS C
     Dosage: 750 MG, TID
     Route: 048
     Dates: start: 20120927, end: 20121118

REACTIONS (2)
  - Rash generalised [Not Recovered/Not Resolved]
  - Rash pruritic [Unknown]
